FAERS Safety Report 10040651 (Version 1)
Quarter: 2014Q1

REPORT INFORMATION
  Report Type: Spontaneous
  Country: US (occurrence: None)
  Receive Date: 20140326
  Receipt Date: 20140326
  Transmission Date: 20141002
  Serious: Yes (Other)
  Sender: FDA-Public Use
  Company Number: None

PATIENT
  Age: 56 Year
  Sex: Female

DRUGS (2)
  1. STROMECTOL [Suspect]
     Indication: ACARODERMATITIS
     Dosage: 8 PILLS, ONCE, THEN REPEAT, TAKEN BY MOUTH, 1 TIME
     Route: 048
  2. STROMECTOL [Suspect]
     Indication: RASH
     Dosage: 8 PILLS, ONCE, THEN REPEAT, TAKEN BY MOUTH, 1 TIME
     Route: 048

REACTIONS (4)
  - Rash generalised [None]
  - Pruritus generalised [None]
  - Swelling face [None]
  - Rash [None]
